FAERS Safety Report 8913645 (Version 1)
Quarter: 2012Q4

REPORT INFORMATION
  Report Type: 
  Country: US (occurrence: US)
  Receive Date: 20121119
  Receipt Date: 20121119
  Transmission Date: 20130627
  Serious: No
  Sender: FDA-Public Use
  Company Number: US-009507513-1208USA009950

PATIENT

DRUGS (1)
  1. AZASITE [Suspect]
     Indication: PRODUCT USED FOR UNKNOWN INDICATION
     Dosage: 1 %, Unknown

REACTIONS (1)
  - Inappropriate schedule of drug administration [Unknown]
